FAERS Safety Report 6017540-4 (Version None)
Quarter: 2008Q4

REPORT INFORMATION
  Report Type: 
  Country: None (occurrence: None)
  Receive Date: 20081223
  Receipt Date: 20081023
  Transmission Date: 20090506
  Serious: Yes (Death)
  Sender: FDA-Public Use
  Company Number: JP-AMGEN-US310228

PATIENT
  Age: 78 Year
  Sex: Female

DRUGS (3)
  1. ENBREL [Suspect]
     Indication: RHEUMATOID ARTHRITIS
     Dosage: UNKNOWN
     Route: 058
  2. RHEUMATREX [Concomitant]
     Dosage: UNKNOWN
  3. UNSPECIFIED MEDICATION [Concomitant]

REACTIONS (1)
  - INTERSTITIAL LUNG DISEASE [None]
